FAERS Safety Report 4323464-0 (Version None)
Quarter: 2004Q1

REPORT INFORMATION
  Report Type: 
  Country: None (occurrence: None)
  Receive Date: 20040325
  Receipt Date: 20040319
  Transmission Date: 20041129
  Serious: Yes (Other)
  Sender: FDA-Public Use
  Company Number: US-ROCHE-362389

PATIENT
  Age: 16 Year
  Sex: Male

DRUGS (6)
  1. ACCUTANE [Suspect]
     Indication: ACNE
     Route: 048
     Dates: start: 20031115, end: 20031215
  2. AMNESTEEM [Suspect]
     Indication: ACNE
     Route: 048
     Dates: start: 20031215
  3. LITHIUM [Concomitant]
     Indication: DEPRESSION
  4. SEROQUEL [Concomitant]
     Indication: DEPRESSION
  5. PAXIL [Concomitant]
     Indication: DEPRESSION
  6. BUSPAR [Concomitant]
     Indication: DEPRESSION

REACTIONS (1)
  - TESTIS CANCER [None]
